FAERS Safety Report 6112633-5 (Version None)
Quarter: 2009Q1

REPORT INFORMATION
  Report Type: 
  Country: None (occurrence: None)
  Receive Date: 20090310
  Receipt Date: 20090224
  Transmission Date: 20090719
  Serious: Yes (Death, Hospitalization)
  Sender: FDA-Public Use
  Company Number: 2008002016

PATIENT
  Age: 67 Year
  Sex: Female

DRUGS (8)
  1. ERLOTNIB (ERLOTINIB) (TABLET) (ERLOTINIB) [Suspect]
     Indication: PANCREATIC CARCINOMA
     Dosage: (100 MG),  ORAL
     Route: 048
     Dates: start: 20080613, end: 20080729
  2. GEMCITABINE [Suspect]
     Indication: PANCREATIC CARCINOMA
     Dosage: (1950 MG, WEEKLY), INTRAVENOUS
     Route: 042
     Dates: start: 20080613
  3. NOVALGIN (METAMIZOLE SODIUM) [Concomitant]
  4. PALLADONE [Concomitant]
  5. DOXEPIN HCL [Concomitant]
  6. MORPHINE [Concomitant]
  7. PANTOPRAZOLE SODIUM [Concomitant]
  8. LURIDE (SODIUM FLUORIDE) [Concomitant]

REACTIONS (6)
  - ANAEMIA [None]
  - HYPOPHAGIA [None]
  - METASTASES TO BONE [None]
  - METASTASES TO LIVER [None]
  - PAIN [None]
  - VOMITING [None]
